FAERS Safety Report 4414849-2 (Version None)
Quarter: 2004Q3

REPORT INFORMATION
  Report Type: 
  Country: None (occurrence: None)
  Receive Date: 20040804
  Receipt Date: 20031205
  Transmission Date: 20050211
  Serious: No
  Sender: FDA-Public Use
  Company Number: US-BRISTOL-MYERS SQUIBB COMPANY-12451209

PATIENT
  Age: 79 Year
  Sex: Female

DRUGS (2)
  1. GLUCOVANCE [Suspect]
     Indication: DIABETES MELLITUS
     Dosage: DOSAGE FORM = TABLET(1.25MG/250MG PER TABLET)
     Route: 048
  2. VASOTEC [Concomitant]

REACTIONS (2)
  - DYSPEPSIA [None]
  - THROAT IRRITATION [None]
